FAERS Safety Report 11126598 (Version 3)
Quarter: 2024Q1

REPORT INFORMATION
  Report Type: Spontaneous
  Country: IT (occurrence: IT)
  Receive Date: 20150520
  Receipt Date: 20240130
  Transmission Date: 20240410
  Serious: Yes (Other)
  Sender: FDA-Public Use
  Company Number: IT-AUROBINDO-AUR-APL-2015-04417

PATIENT
  Age: 79 Year
  Sex: Male

DRUGS (4)
  1. DONEPEZIL [Suspect]
     Active Substance: DONEPEZIL
     Indication: Dementia
     Dosage: 5 MG, DAILY
     Route: 048
     Dates: start: 20150108, end: 20150129
  2. OLANZAPINE [Concomitant]
     Active Substance: OLANZAPINE
     Indication: Restlessness
     Dosage: 7.5 MG, UNK
     Route: 048
     Dates: start: 20141023, end: 20150120
  3. MANIDIPINE [Concomitant]
     Active Substance: MANIDIPINE
     Indication: Hypertension
     Dosage: 10 MG, UNK
     Route: 048
  4. CANDESARTAN [Concomitant]
     Active Substance: CANDESARTAN
     Indication: Hypertension
     Dosage: 32 MG, UNK
     Route: 048

REACTIONS (6)
  - Drop attacks [Recovered/Resolved]
  - Contusion [Recovered/Resolved]
  - Somnolence [Recovered/Resolved]
  - Dehydration [Recovered/Resolved]
  - Depressed level of consciousness [Recovered/Resolved]
  - Sopor [Recovered/Resolved]

NARRATIVE: CASE EVENT DATE: 20150111
